FAERS Safety Report 7652278-9 (Version None)
Quarter: 2011Q3

REPORT INFORMATION
  Report Type: 
  Country: None (occurrence: None)
  Receive Date: 20110722
  Receipt Date: 20101221
  Transmission Date: 20111222
  Serious: Yes (Hospitalization)
  Sender: FDA-Public Use
  Company Number: UTC-003678

PATIENT
  Age: 42 Year
  Sex: Female
  Weight: 75.5 kg

DRUGS (2)
  1. REMODULIN [Suspect]
     Dosage: 47.52 UG/KG (0.033 UG/KG, 1 IN 1 MIN), INTRAVENOUS
     Route: 042
     Dates: start: 20100929
  2. ADCIRCA [Concomitant]

REACTIONS (1)
  - DEVICE RELATED INFECTION [None]
